FAERS Safety Report 9800839 (Version 1)
Quarter: 2014Q1

REPORT INFORMATION
  Report Type: Spontaneous
  Country: US (occurrence: US)
  Receive Date: 20140107
  Receipt Date: 20140107
  Transmission Date: 20141002
  Serious: Yes (Other)
  Sender: FDA-Public Use
  Company Number: US-JNJFOC-20140100862

PATIENT
  Age: 66 Year
  Sex: Female
  Weight: 61.24 kg

DRUGS (9)
  1. XARELTO [Suspect]
     Indication: CEREBROVASCULAR ACCIDENT PROPHYLAXIS
     Route: 048
     Dates: start: 201301, end: 201312
  2. XARELTO [Suspect]
     Indication: ATRIAL FIBRILLATION
     Route: 048
     Dates: start: 201301, end: 201312
  3. LEVOTHYROXINE [Concomitant]
     Indication: HYPOTHYROIDISM
     Route: 048
     Dates: start: 1994
  4. LEXAPRO [Concomitant]
     Indication: PAIN
     Route: 048
     Dates: start: 2001
  5. OMEPRAZOLE [Concomitant]
     Indication: GASTROOESOPHAGEAL REFLUX DISEASE
     Dosage: ONCE OR TWICE DAILY AS NEEDED
     Route: 048
     Dates: start: 2010
  6. ROBAXIN [Concomitant]
     Indication: MUSCLE RELAXANT THERAPY
     Dosage: ONCE OR TWICE DAILY AS NEEDED
     Route: 048
     Dates: start: 2002
  7. HYDROCODONE [Concomitant]
     Indication: BACK INJURY
     Dosage: 5 TO 500 MG TWICE DAILY AS NEEDED
     Route: 048
  8. HYDROCODONE [Concomitant]
     Indication: NECK INJURY
     Dosage: 5 TO 500 MG TWICE DAILY AS NEEDED
     Route: 048
  9. METOPROLOL [Concomitant]
     Indication: HEART RATE IRREGULAR
     Dosage: ONCE OR TWICE DAILY AS NEEDED
     Route: 048
     Dates: start: 2013

REACTIONS (2)
  - Thyroid neoplasm [Not Recovered/Not Resolved]
  - Muscle spasms [Recovered/Resolved]
